FAERS Safety Report 9959379 (Version 1)
Quarter: 2014Q1

REPORT INFORMATION
  Report Type: Report from Study
  Country: US (occurrence: US)
  Receive Date: 20140305
  Receipt Date: 20140305
  Transmission Date: 20141002
  Serious: No
  Sender: FDA-Public Use
  Company Number: US-ABBVIE-13P-163-1106773-00

PATIENT
  Age: 20 Year
  Sex: Male
  Weight: 70.37 kg

DRUGS (6)
  1. HUMIRA [Suspect]
     Indication: CROHN^S DISEASE
     Route: 058
     Dates: start: 20120904, end: 20120904
  2. HUMIRA [Suspect]
     Route: 058
     Dates: start: 20120918, end: 20120918
  3. HUMIRA [Suspect]
     Route: 058
     Dates: start: 20121002
  4. METHOTREXATE [Concomitant]
     Indication: CROHN^S DISEASE
  5. FISH OIL [Concomitant]
     Indication: CROHN^S DISEASE
  6. FOLIC ACID [Concomitant]
     Indication: CROHN^S DISEASE

REACTIONS (1)
  - Injection site pain [Not Recovered/Not Resolved]
